FAERS Safety Report 9584241 (Version 1)
Quarter: 2013Q4

REPORT INFORMATION
  Report Type: Spontaneous
  Country: US (occurrence: US)
  Receive Date: 20131002
  Receipt Date: 20131002
  Transmission Date: 20140711
  Serious: No
  Sender: FDA-Public Use
  Company Number: US-AMGEN-USASP2013052018

PATIENT
  Age: 54 Year
  Sex: Male
  Weight: 80.27 kg

DRUGS (9)
  1. ENBREL [Suspect]
     Indication: RHEUMATOID ARTHRITIS
     Dosage: 50 MG, UNK
     Route: 058
     Dates: start: 20090101, end: 20130401
  2. AGGRENOX [Concomitant]
  3. ARAVA [Concomitant]
     Dosage: UNK
  4. ATENOLOL [Concomitant]
     Dosage: UNK
  5. FOLIC ACID [Concomitant]
     Dosage: UNK
  6. LIPITOR [Concomitant]
     Dosage: UNK
  7. MAGNESIUM [Concomitant]
     Dosage: UNK
  8. PREDNISONE [Concomitant]
  9. SIMPONI [Concomitant]
     Dosage: UNK
     Dates: start: 20130701

REACTIONS (1)
  - Therapeutic response decreased [Unknown]
